FAERS Safety Report 17129915 (Version 2)
Quarter: 2020Q1

REPORT INFORMATION
  Report Type: Spontaneous
  Country: US (occurrence: US)
  Receive Date: 20191209
  Receipt Date: 20200224
  Transmission Date: 20200409
  Serious: Yes (Other)
  Sender: FDA-Public Use
  Company Number: US-SA-2019SA338496

PATIENT
  Age: 75 Year
  Sex: Female
  Weight: 45.36 kg

DRUGS (13)
  1. CITALOPRAM [Concomitant]
     Active Substance: CITALOPRAM HYDROBROMIDE
  2. TAXOTERE [Suspect]
     Active Substance: DOCETAXEL
     Indication: BREAST CANCER FEMALE
     Dosage: 530 MG/M2 + 44 MG, Q3W
     Route: 042
     Dates: start: 20150527, end: 20150527
  3. TAXOTERE [Suspect]
     Active Substance: DOCETAXEL
     Dosage: 530 MG/M2 + 44 MG, Q3W
     Route: 042
     Dates: start: 20151211, end: 20151211
  4. VITAMIN D3 CALCIUM [Concomitant]
     Active Substance: CALCIUM\CHOLECALCIFEROL
  5. FENTANYL. [Concomitant]
     Active Substance: FENTANYL
  6. TAXOL [Concomitant]
     Active Substance: PACLITAXEL
     Indication: BREAST CANCER FEMALE
  7. OMEPRAZOLE. [Concomitant]
     Active Substance: OMEPRAZOLE
  8. ADRIAMYCIN [Concomitant]
     Active Substance: DOXORUBICIN HYDROCHLORIDE
  9. NEOSAR [Concomitant]
     Active Substance: CYCLOPHOSPHAMIDE
     Indication: BREAST CANCER FEMALE
  10. METFORMIN [Concomitant]
     Active Substance: METFORMIN HYDROCHLORIDE
  11. CHOLEST-OFF [Concomitant]
     Active Substance: DIETARY SUPPLEMENT
  12. VITAMIN B12 [Concomitant]
     Active Substance: CYANOCOBALAMIN
     Dosage: UNK
  13. CORTISONE ACETATE. [Concomitant]
     Active Substance: CORTISONE ACETATE

REACTIONS (4)
  - Alopecia [Not Recovered/Not Resolved]
  - Pain [Unknown]
  - Anxiety [Unknown]
  - Psychological trauma [Unknown]

NARRATIVE: CASE EVENT DATE: 201505
